FAERS Safety Report 19358441 (Version 1)
Quarter: 2021Q2

REPORT INFORMATION
  Report Type: Spontaneous
  Country: US (occurrence: US)
  Receive Date: 20210602
  Receipt Date: 20210602
  Transmission Date: 20210717
  Serious: No
  Sender: FDA-Public Use
  Company Number: US-BEH-2021132253

PATIENT
  Sex: Female

DRUGS (2)
  1. PRIVIGEN [Suspect]
     Active Substance: HUMAN IMMUNOGLOBULIN G
     Indication: NEUROLOGIC NEGLECT SYNDROME
     Dosage: 10 GRAM, QMT (EVERY 4 WEEKS)
     Route: 042
     Dates: start: 202104
  2. PRIVIGEN [Suspect]
     Active Substance: HUMAN IMMUNOGLOBULIN G
     Dosage: 40 GRAM, QMT (EVERY 4 WEEKS)
     Route: 042
     Dates: start: 202104

REACTIONS (3)
  - Ear infection [Unknown]
  - Off label use [Unknown]
  - No adverse event [Unknown]
